FAERS Safety Report 5799437-8 (Version None)
Quarter: 2008Q3

REPORT INFORMATION
  Report Type: 
  Country: None (occurrence: None)
  Receive Date: 20080702
  Receipt Date: 20080702
  Transmission Date: 20090109
  Serious: Yes (Hospitalization)
  Sender: FDA-Public Use
  Company Number: None

PATIENT
  Sex: Female
  Weight: 35.2 kg

DRUGS (3)
  1. CISPLATIN [Suspect]
     Dosage: 61 MG
  2. DOXORUBICIN HYDROCHLORIDE [Suspect]
     Dosage: 36 MG
  3. TAXOL [Suspect]
     Dosage: 152 MG

REACTIONS (1)
  - THROMBOCYTOPENIA [None]
